FAERS Safety Report 6942658-9 (Version None)
Quarter: 2010Q3

REPORT INFORMATION
  Report Type: 
  Country: None (occurrence: None)
  Receive Date: 20100826
  Receipt Date: 20100812
  Transmission Date: 20110219
  Serious: Yes (Other)
  Sender: FDA-Public Use
  Company Number: PHHY2010BR53796

PATIENT
  Sex: Female
  Weight: 39 kg

DRUGS (8)
  1. HYDERGINE [Suspect]
     Indication: CARDIOVASCULAR DISORDER
     Dosage: 4.5 MG, QD
     Route: 048
  2. HYDERGINE [Suspect]
     Dosage: UNK
     Route: 048
  3. ARADOIS [Concomitant]
     Indication: HYPERTENSION
     Dosage: 1 TABLET DAILY
     Route: 048
  4. RIVOTRIL [Concomitant]
     Indication: SYNCOPE
     Dosage: 8 DROPS AT NIGHT
     Route: 048
  5. RIVOTRIL [Concomitant]
     Indication: CONVULSION
  6. FLUOXETINE HYDROCHLORIDE [Concomitant]
     Indication: DEPRESSION
     Dosage: 10 DROPS IN THE MORNING
     Route: 048
  7. TAMARINE [Concomitant]
     Indication: TOXIC DILATATION OF INTESTINE
     Dosage: 1 CAPSULE ONCE DAILY MIXED WITH FOOD
     Route: 048
  8. GARDENAL [Concomitant]
     Indication: CONVULSION
     Dosage: 10 DROPS AT NIGHT
     Route: 048
     Dates: start: 20100811

REACTIONS (5)
  - CONVULSION [None]
  - DYSPHAGIA [None]
  - FEAR OF FALLING [None]
  - URINARY TRACT INFECTION [None]
  - WRONG DRUG ADMINISTERED [None]
